FAERS Safety Report 6691276-9 (Version None)
Quarter: 2010Q2

REPORT INFORMATION
  Report Type: 
  Country: None (occurrence: None)
  Receive Date: 20100422
  Receipt Date: 20100413
  Transmission Date: 20101027
  Serious: Yes (Hospitalization)
  Sender: FDA-Public Use
  Company Number: FR-JNJFOC-20100205733

PATIENT
  Sex: Female
  Weight: 60 kg

DRUGS (8)
  1. REMINYL LP [Suspect]
     Indication: DEMENTIA ALZHEIMER'S TYPE
     Route: 048
  2. REMINYL LP [Suspect]
     Route: 048
  3. REMINYL LP [Suspect]
     Route: 048
  4. REMINYL LP [Suspect]
     Route: 048
  5. SEROPLEX [Concomitant]
     Route: 065
  6. XANAX [Concomitant]
     Route: 065
  7. NOVONORM [Concomitant]
     Indication: TYPE 2 DIABETES MELLITUS
     Route: 065
  8. APROVEL [Concomitant]
     Route: 065

REACTIONS (9)
  - AGITATION [None]
  - ANXIETY [None]
  - CONFUSIONAL STATE [None]
  - FALL [None]
  - FRACTURE [None]
  - PULMONARY EMBOLISM [None]
  - SUICIDAL IDEATION [None]
  - SUICIDE ATTEMPT [None]
  - URINARY RETENTION [None]
